FAERS Safety Report 13574755 (Version 3)
Quarter: 2017Q3

REPORT INFORMATION
  Report Type: Spontaneous
  Country: JP (occurrence: JP)
  Receive Date: 20170523
  Receipt Date: 20170717
  Transmission Date: 20171127
  Serious: Yes (Other)
  Sender: FDA-Public Use
  Company Number: PHJP2017JP016534

PATIENT
  Sex: Female

DRUGS (4)
  1. TARIVID [Concomitant]
     Active Substance: OFLOXACIN
     Indication: PRODUCT USED FOR UNKNOWN INDICATION
     Dosage: UNK, QID
     Route: 047
     Dates: start: 20170216
  2. TARIVID OPHTHALMIC [Concomitant]
     Active Substance: OFLOXACIN
     Indication: PRODUCT USED FOR UNKNOWN INDICATION
     Dosage: UNK UNK, TID
     Route: 047
     Dates: start: 20170220
  3. NEVANAC [Suspect]
     Active Substance: NEPAFENAC
     Indication: POSTOPERATIVE CARE
     Dosage: UNK, QID
     Route: 047
     Dates: start: 20170216, end: 20170220
  4. RINDERON V [Concomitant]
     Active Substance: BETAMETHASONE VALERATE
     Indication: PRODUCT USED FOR UNKNOWN INDICATION
     Dosage: UNK, QID
     Route: 047
     Dates: start: 20170216, end: 20170220

REACTIONS (8)
  - Foreign body sensation in eyes [Unknown]
  - Ulcerative keratitis [Recovered/Resolved]
  - Corneal infiltrates [Unknown]
  - Corneal epithelium defect [Unknown]
  - Conjunctival oedema [Unknown]
  - Ocular hyperaemia [Unknown]
  - Eye pain [Unknown]
  - Corneal erosion [Unknown]

NARRATIVE: CASE EVENT DATE: 20170220
